FAERS Safety Report 8959487 (Version 4)
Quarter: 2013Q1

REPORT INFORMATION
  Report Type: Report from Study
  Country: AU (occurrence: AU)
  Receive Date: 20121212
  Receipt Date: 20130308
  Transmission Date: 20140127
  Serious: Yes (Other)
  Sender: FDA-Public Use
  Company Number: AU-ROCHE-1167172

PATIENT
  Age: 67 Year
  Sex: Female

DRUGS (19)
  1. ACTEMRA [Suspect]
     Indication: RHEUMATOID ARTHRITIS
     Route: 042
     Dates: start: 20110207
  2. ACTEMRA [Suspect]
     Route: 042
     Dates: start: 20100110
  3. ASPIRIN [Concomitant]
     Route: 048
  4. COVERSYL PLUS (AUSTRALIA) [Concomitant]
     Indication: BLOOD PRESSURE
     Dosage: 5/1.25 MG
     Route: 048
  5. AMITRIPTYLINE [Concomitant]
     Route: 048
  6. MEGAFOL [Concomitant]
     Route: 048
  7. METHOTREXATE [Concomitant]
     Route: 048
  8. NEXIUM [Concomitant]
     Route: 048
  9. RANITIDINE [Concomitant]
     Route: 065
  10. ATENOLOL [Concomitant]
     Indication: BLOOD PRESSURE
     Dosage: 1/2 TAB OD
     Route: 048
  11. PREDNISOLONE [Concomitant]
     Route: 048
  12. ROSUVASTATIN [Concomitant]
     Route: 048
  13. IMDUR [Concomitant]
     Route: 065
     Dates: start: 20121112
  14. MOBIC [Concomitant]
     Route: 065
  15. NOTEN [Concomitant]
  16. TEMAZE [Concomitant]
  17. CODALGIN FORTE [Concomitant]
  18. ENDEP [Concomitant]
     Route: 065
  19. NEXIUM [Concomitant]
     Route: 065

REACTIONS (2)
  - Hypotension [Recovering/Resolving]
  - Dyspnoea exertional [Recovering/Resolving]
